FAERS Safety Report 20392855 (Version 1)
Quarter: 2022Q1

REPORT INFORMATION
  Report Type: Spontaneous
  Country: CN (occurrence: None)
  Receive Date: 20220128
  Receipt Date: 20220128
  Transmission Date: 20220423
  Serious: Yes (Other)
  Sender: FDA-Public Use
  Company Number: 2022A038644

PATIENT
  Age: 69 Year
  Sex: Male
  Weight: 76 kg

DRUGS (5)
  1. GEFITINIB [Suspect]
     Active Substance: GEFITINIB
     Indication: Lung adenocarcinoma
     Dosage: 0.25G ONCE A DAY
     Route: 048
  2. EUCALYPTOL [Concomitant]
     Active Substance: EUCALYPTOL
     Route: 065
  3. LIMONENE, (+/-)- [Concomitant]
     Active Substance: LIMONENE, (+/-)-
     Route: 065
  4. PINENE [Concomitant]
     Dosage: 2 TIMES EVERY DAY,
     Route: 065
  5. THYMOPENTIN [Concomitant]
     Active Substance: THYMOPENTIN
     Dosage: 1 TIME EVERY DAY
     Route: 030

REACTIONS (1)
  - Myelosuppression [Recovering/Resolving]
